FAERS Safety Report 10673965 (Version 1)
Quarter: 2014Q4

REPORT INFORMATION
  Report Type: Spontaneous
  Country: NL (occurrence: None)
  Receive Date: 20141222
  Receipt Date: 20141222
  Transmission Date: 20150529
  Serious: Yes (Life-Threatening, Hospitalization, Other)
  Sender: FDA-Public Use
  Company Number: ADR-2014-02392

PATIENT
  Age: 46 Year
  Sex: Female

DRUGS (3)
  1. CLOMIPRAMINE [Suspect]
     Active Substance: CLOMIPRAMINE
  2. OXAZEPAM. [Suspect]
     Active Substance: OXAZEPAM
     Indication: ALCOHOLISM
  3. BACLOFEN (ORAL) [Suspect]
     Active Substance: BACLOFEN
     Indication: ALCOHOLISM

REACTIONS (16)
  - Disturbance in attention [None]
  - Hypothermia [None]
  - Hypertension [None]
  - Respiratory failure [None]
  - Toxicity to various agents [None]
  - Mydriasis [None]
  - Vomiting [None]
  - Depressed level of consciousness [None]
  - Hyperhidrosis [None]
  - Nausea [None]
  - Hypokalaemia [None]
  - Accidental overdose [None]
  - Restlessness [None]
  - Drug level decreased [None]
  - Hyponatraemia [None]
  - Hallucination, auditory [None]

NARRATIVE: CASE EVENT DATE: 20141101
